FAERS Safety Report 20263543 (Version 1)
Quarter: 2021Q4

REPORT INFORMATION
  Report Type: Spontaneous
  Country: NL (occurrence: NL)
  Receive Date: 20211231
  Receipt Date: 20211231
  Transmission Date: 20220303
  Serious: Yes (Life-Threatening)
  Sender: FDA-Public Use
  Company Number: None

PATIENT
  Age: 79 Year
  Sex: Female
  Weight: 51 kg

DRUGS (5)
  1. GABAPENTIN [Interacting]
     Active Substance: GABAPENTIN
     Indication: Pain in extremity
     Dosage: 300 MILLIGRAM DAILY; FOR THE NIGHT 1,GABAPENTINE CAPSULE 300MG / BRAND NAME NOT SPECIFIED
     Dates: start: 20211126, end: 20211201
  2. FENTANYL [Interacting]
     Active Substance: FENTANYL
     Dosage: PLASTER, 100 UG (MICROGRAMS) PER HOUR,FENTANYL PLASTER 100UG/HOUR (GENERIC+DUROGESIC) / BRAND NAME N
     Route: 065
  3. FENTANYL [Interacting]
     Active Substance: FENTANYL
     Dosage: FENTANYL PLASTER 25UG/HOUR (GENERIC+DUROGESIC) / BRAND NAME NOT SPECIFIED,PLASTER, 25 UG (MICROGRAMS
     Route: 065
  4. CLONAZEPAM [Concomitant]
     Active Substance: CLONAZEPAM
     Dosage: 0,5 MG (MILLIGRAM),CLONAZEPAM TABLET 0.5MG / BRAND NAME NOT SPECIFIED,THERAPY START DATE :THERAPY EN
  5. TEMAZEPAM [Concomitant]
     Active Substance: TEMAZEPAM
     Dosage: 20 MG (MILLIGRAM),TEMAZEPAM CAPSULE 20MG / BRAND NAME NOT SPECIFIED,THERAPY START DATE :THERAPY END

REACTIONS (4)
  - Miosis [Recovered/Resolved]
  - Toxicity to various agents [Recovered/Resolved]
  - Drug interaction [Recovered/Resolved]
  - Respiratory depression [Recovered/Resolved]

NARRATIVE: CASE EVENT DATE: 20211201
